FAERS Safety Report 10883960 (Version 2)
Quarter: 2015Q1

REPORT INFORMATION
  Report Type: Spontaneous
  Country: IT (occurrence: IT)
  Receive Date: 20150304
  Receipt Date: 20150313
  Transmission Date: 20150721
  Serious: Yes (Death, Hospitalization, Other)
  Sender: FDA-Public Use
  Company Number: IT-AMGEN-ITASP2015018275

PATIENT
  Age: 82 Year
  Sex: Male

DRUGS (1)
  1. ARANESP [Suspect]
     Active Substance: DARBEPOETIN ALFA
     Indication: CHRONIC KIDNEY DISEASE
     Dosage: 60 MUG, QWK
     Route: 065
     Dates: start: 2013

REACTIONS (7)
  - Hospitalisation [Unknown]
  - Influenza [Unknown]
  - Headache [Not Recovered/Not Resolved]
  - Infarction [Fatal]
  - Haemoglobin decreased [Recovering/Resolving]
  - Gingivitis [Unknown]
  - Asthenia [Unknown]

NARRATIVE: CASE EVENT DATE: 2013
